FAERS Safety Report 15951538 (Version 2)
Quarter: 2019Q1

REPORT INFORMATION
  Report Type: Spontaneous
  Country: FR (occurrence: FR)
  Receive Date: 20190212
  Receipt Date: 20190226
  Transmission Date: 20190417
  Serious: Yes (Hospitalization)
  Sender: FDA-Public Use
  Company Number: FR-ALLERGAN-1906124US

PATIENT
  Age: 49 Year
  Sex: Female
  Weight: 45 kg

DRUGS (2)
  1. FOSFOMYCIN TROMETHAMINE - BP [Suspect]
     Active Substance: FOSFOMYCIN TROMETHAMINE
     Indication: CYSTITIS
     Dosage: UNK
     Route: 048
     Dates: start: 20181117
  2. CEFIXIME. [Suspect]
     Active Substance: CEFIXIME
     Indication: CYSTITIS
     Dosage: UNK
     Route: 048
     Dates: start: 20181125, end: 20181130

REACTIONS (1)
  - Clostridium colitis [Recovering/Resolving]

NARRATIVE: CASE EVENT DATE: 20181201
